FAERS Safety Report 14020205 (Version 1)
Quarter: 2017Q3

REPORT INFORMATION
  Report Type: Spontaneous
  Country: FR (occurrence: FR)
  Receive Date: 20170928
  Receipt Date: 20170928
  Transmission Date: 20171128
  Serious: Yes (Other)
  Sender: FDA-Public Use
  Company Number: FR-MERCK KGAA-2028051

PATIENT
  Age: 64 Year
  Sex: Female

DRUGS (2)
  1. ZYMAD [Concomitant]
     Active Substance: CHOLECALCIFEROL
     Route: 048
  2. NOVOTHYROX [Suspect]
     Active Substance: LEVOTHYROXINE SODIUM
     Indication: HYPOTHYROIDISM
     Route: 048
     Dates: start: 201702

REACTIONS (8)
  - Palpitations [Not Recovered/Not Resolved]
  - Arrhythmia [Not Recovered/Not Resolved]
  - Migraine [Not Recovered/Not Resolved]
  - Dizziness [Not Recovered/Not Resolved]
  - Vertigo positional [Not Recovered/Not Resolved]
  - Lymphocyte percentage decreased [Unknown]
  - Blood thyroid stimulating hormone increased [Not Recovered/Not Resolved]
  - Tongue discolouration [Not Recovered/Not Resolved]

NARRATIVE: CASE EVENT DATE: 201704
